FAERS Safety Report 11983730 (Version 1)
Quarter: 2016Q1

REPORT INFORMATION
  Report Type: Spontaneous
  Country: US (occurrence: US)
  Receive Date: 20160201
  Receipt Date: 20160201
  Transmission Date: 20160526
  Serious: No
  Sender: FDA-Public Use
  Company Number: US-JNJFOC-20151218920

PATIENT
  Age: 78 Year
  Sex: Male
  Weight: 81.65 kg

DRUGS (3)
  1. PEPCID COMPLETE [Suspect]
     Active Substance: CALCIUM CARBONATE\FAMOTIDINE\MAGNESIUM HYDROXIDE
     Indication: DYSPEPSIA
     Route: 048
     Dates: end: 20151220
  2. PEPCID COMPLETE [Suspect]
     Active Substance: CALCIUM CARBONATE\FAMOTIDINE\MAGNESIUM HYDROXIDE
     Route: 048
  3. MOTRIN 400MG [Concomitant]
     Indication: PAIN IN EXTREMITY
     Dosage: 20 YEARS
     Route: 065

REACTIONS (2)
  - Epistaxis [Recovered/Resolved]
  - Incorrect drug administration duration [Unknown]
